FAERS Safety Report 8060161-2 (Version None)
Quarter: 2012Q1

REPORT INFORMATION
  Report Type: 
  Country: None (occurrence: None)
  Receive Date: 20120120
  Receipt Date: 20120117
  Transmission Date: 20120608
  Serious: Yes (Death, Other)
  Sender: FDA-Public Use
  Company Number: US-PFIZER INC-2012014023

PATIENT

DRUGS (1)
  1. GEODON [Suspect]
     Dosage: 80 MG, 1 TABLET 2X/DAY, QUANTITY 180

REACTIONS (1)
  - DEATH [None]
